FAERS Safety Report 20017302 (Version 2)
Quarter: 2022Q2

REPORT INFORMATION
  Report Type: Report from Study
  Country: GB (occurrence: GB)
  Receive Date: 20211030
  Receipt Date: 20220428
  Transmission Date: 20220721
  Serious: Yes (Other)
  Sender: FDA-Public Use
  Company Number: GB-NOVARTISPH-NVSC2021GB090216

PATIENT
  Sex: Female

DRUGS (1)
  1. HYRIMOZ [Suspect]
     Active Substance: ADALIMUMAB-ADAZ
     Indication: Psoriasis
     Dosage: 40 MG, EOW
     Route: 058
     Dates: start: 20191028

REACTIONS (7)
  - Lower respiratory tract infection [Unknown]
  - Hyperhidrosis [Unknown]
  - Stress [Unknown]
  - Malaise [Unknown]
  - COVID-19 [Unknown]
  - Skin discomfort [Recovering/Resolving]
  - Psoriasis [Recovering/Resolving]
